FAERS Safety Report 23061452 (Version 1)
Quarter: 2023Q4

REPORT INFORMATION
  Report Type: Spontaneous
  Country: US (occurrence: US)
  Receive Date: 20231013
  Receipt Date: 20231013
  Transmission Date: 20240109
  Serious: No
  Sender: FDA-Public Use
  Company Number: US-BoehringerIngelheim-2023-BI-265840

PATIENT
  Age: 67 Year
  Sex: Female

DRUGS (4)
  1. JARDIANCE [Suspect]
     Active Substance: EMPAGLIFLOZIN
     Indication: Product used for unknown indication
  2. TALTZ [Concomitant]
     Active Substance: IXEKIZUMAB
     Indication: Prostatic specific antigen
     Dates: start: 20230122, end: 20230522
  3. AMLODIPINE BESYLATE [Concomitant]
     Active Substance: AMLODIPINE BESYLATE
     Indication: Product used for unknown indication
  4. Hyzar [Concomitant]
     Indication: Product used for unknown indication

REACTIONS (7)
  - Haematuria [Unknown]
  - Bladder ulcer [Unknown]
  - Polyp [Unknown]
  - Papule [Unknown]
  - Arthropathy [Unknown]
  - Bladder discomfort [Unknown]
  - Skin disorder [Unknown]

NARRATIVE: CASE EVENT DATE: 20230928
